FAERS Safety Report 15734810 (Version 3)
Quarter: 2019Q1

REPORT INFORMATION
  Report Type: Report from Study
  Country: US (occurrence: US)
  Receive Date: 20181218
  Receipt Date: 20190226
  Transmission Date: 20190417
  Serious: Yes (Hospitalization)
  Sender: FDA-Public Use
  Company Number: US-TAKEDA-2018TUS035594

PATIENT
  Age: 8 Year
  Sex: Male

DRUGS (1)
  1. VEDOLIZUMAB [Suspect]
     Active Substance: VEDOLIZUMAB
     Indication: COLITIS ULCERATIVE
     Dosage: 250 MG, UNK
     Route: 042
     Dates: start: 20181120, end: 20181204

REACTIONS (8)
  - Clostridium difficile infection [Recovered/Resolved]
  - Haemoglobin decreased [Unknown]
  - Weight decreased [Unknown]
  - Off label use [Unknown]
  - Sedation [Unknown]
  - Product use issue [Unknown]
  - Blood calcium decreased [Unknown]
  - Haematochezia [Unknown]

NARRATIVE: CASE EVENT DATE: 20181204
